FAERS Safety Report 22871688 (Version 3)
Quarter: 2024Q3

REPORT INFORMATION
  Report Type: Spontaneous
  Country: PT (occurrence: PT)
  Receive Date: 20230828
  Receipt Date: 20240808
  Transmission Date: 20241017
  Serious: Yes (Hospitalization, Other)
  Sender: AUROBINDO
  Company Number: PT-PFIZER INC-PV202300137213

PATIENT
  Age: 15 Year
  Sex: Male

DRUGS (28)
  1. CLOBAZAM [Suspect]
     Active Substance: CLOBAZAM
     Indication: Epilepsia partialis continua
     Dosage: 20 MILLIGRAM
     Route: 065
  2. CLOBAZAM [Suspect]
     Active Substance: CLOBAZAM
     Indication: Extragonadal primary seminoma (pure)
  3. CLOBAZAM [Suspect]
     Active Substance: CLOBAZAM
     Indication: Encephalitis
  4. ESLICARBAZEPINE ACETATE [Suspect]
     Active Substance: ESLICARBAZEPINE ACETATE
     Indication: Epilepsia partialis continua
     Dosage: 1600 MILLIGRAM, ONCE A DAY
     Route: 065
  5. LACOSAMIDE [Suspect]
     Active Substance: LACOSAMIDE
     Indication: Encephalitis
     Dosage: 400 MILLIGRAM, ONCE A DAY (200 MG BID)
     Route: 065
  6. LACOSAMIDE [Suspect]
     Active Substance: LACOSAMIDE
     Indication: Extragonadal primary seminoma (pure)
  7. LACOSAMIDE [Suspect]
     Active Substance: LACOSAMIDE
     Indication: Epilepsia partialis continua
  8. VALPROIC ACID [Suspect]
     Active Substance: VALPROIC ACID
     Indication: Extragonadal primary seminoma (pure)
     Dosage: 40 MILLIGRAM/KILOGRAM
     Route: 065
  9. VALPROIC ACID [Suspect]
     Active Substance: VALPROIC ACID
     Indication: Epilepsia partialis continua
  10. VALPROIC ACID [Suspect]
     Active Substance: VALPROIC ACID
     Indication: Encephalitis
  11. AZATHIOPRINE [Suspect]
     Active Substance: AZATHIOPRINE
     Indication: Encephalitis
     Dosage: 150 MILLIGRAM, ONCE A DAY
     Route: 065
  12. AZATHIOPRINE [Suspect]
     Active Substance: AZATHIOPRINE
     Indication: Epilepsia partialis continua
  13. AZATHIOPRINE [Suspect]
     Active Substance: AZATHIOPRINE
     Indication: Extragonadal primary seminoma (pure)
  14. FELBAMATE [Suspect]
     Active Substance: FELBAMATE
     Indication: Epilepsia partialis continua
     Dosage: 3600 MILLIGRAM, ONCE A DAY (1800 MILLIGRAM, BID)
     Route: 065
  15. HUMAN IMMUNOGLOBULIN G [Suspect]
     Active Substance: HUMAN IMMUNOGLOBULIN G
     Indication: Epilepsia partialis continua
     Dosage: UNK (MONTHLY)
     Route: 042
  16. HUMAN IMMUNOGLOBULIN G [Suspect]
     Active Substance: HUMAN IMMUNOGLOBULIN G
     Indication: Encephalitis
     Dosage: 2 GRAM PER KILOGRAM (2G/KG (2-DAY COURSE))
     Route: 042
  17. HUMAN IMMUNOGLOBULIN G [Suspect]
     Active Substance: HUMAN IMMUNOGLOBULIN G
     Indication: Extragonadal primary seminoma (pure)
  18. METHYLPREDNISOLONE SODIUM SUCCINATE [Suspect]
     Active Substance: METHYLPREDNISOLONE SODIUM SUCCINATE
     Indication: Epilepsia partialis continua
     Dosage: 1 GRAM (1 G (5-DAY COURSE)
     Route: 042
  19. METHYLPREDNISOLONE SODIUM SUCCINATE [Suspect]
     Active Substance: METHYLPREDNISOLONE SODIUM SUCCINATE
     Indication: Extragonadal primary seminoma (pure)
  20. METHYLPREDNISOLONE SODIUM SUCCINATE [Suspect]
     Active Substance: METHYLPREDNISOLONE SODIUM SUCCINATE
     Indication: Encephalitis
  21. PREDNISONE [Suspect]
     Active Substance: PREDNISONE
     Indication: Epilepsia partialis continua
     Dosage: 40 MILLIGRAM
     Route: 048
  22. PREDNISONE [Suspect]
     Active Substance: PREDNISONE
     Indication: Encephalitis
  23. PREDNISONE [Suspect]
     Active Substance: PREDNISONE
     Indication: Extragonadal primary seminoma (pure)
  24. PERAMPANEL [Suspect]
     Active Substance: PERAMPANEL
     Indication: Epilepsia partialis continua
     Dosage: 8 MILLIGRAM
     Route: 065
  25. PERAMPANEL [Suspect]
     Active Substance: PERAMPANEL
     Indication: Encephalitis
  26. RITUXIMAB [Suspect]
     Active Substance: RITUXIMAB
     Indication: Encephalitis
     Dosage: 375 MILLIGRAM/SQ. METER
     Route: 042
  27. RITUXIMAB [Suspect]
     Active Substance: RITUXIMAB
     Indication: Epilepsia partialis continua
  28. RITUXIMAB [Suspect]
     Active Substance: RITUXIMAB
     Indication: Extragonadal primary seminoma (pure)

REACTIONS (4)
  - Drug ineffective [Unknown]
  - Disease progression [Unknown]
  - Drug ineffective for unapproved indication [Unknown]
  - Off label use [Unknown]
